FAERS Safety Report 4375969-4 (Version None)
Quarter: 2004Q2

REPORT INFORMATION
  Report Type: 
  Country: None (occurrence: None)
  Receive Date: 20040611
  Receipt Date: 20040603
  Transmission Date: 20050107
  Serious: Yes (Hospitalization)
  Sender: FDA-Public Use
  Company Number: US-AMGEN-US079053

PATIENT
  Age: 80 Year
  Sex: Male

DRUGS (5)
  1. PROCRIT [Suspect]
     Indication: ANAEMIA
     Dates: start: 20010101
  2. IMDUR [Concomitant]
  3. DIGOXIN [Concomitant]
  4. IRON [Concomitant]
  5. TRIAMCINOLONE [Concomitant]

REACTIONS (3)
  - HOSPITALISATION [None]
  - OEDEMA [None]
  - RASH [None]
